FAERS Safety Report 13081814 (Version 1)
Quarter: 2017Q1

REPORT INFORMATION
  Report Type: Spontaneous
  Country: US (occurrence: US)
  Receive Date: 20170103
  Receipt Date: 20170103
  Transmission Date: 20170428
  Serious: Yes (Hospitalization)
  Sender: FDA-Public Use
  Company Number: US-BAYER-2016-242444

PATIENT
  Sex: Male
  Weight: 95 kg

DRUGS (1)
  1. BAYER ASPIRIN [Suspect]
     Active Substance: ASPIRIN
     Indication: ANTICOAGULANT THERAPY
     Dosage: QOD
     Route: 048
     Dates: start: 2014

REACTIONS (3)
  - Contusion [Recovered/Resolved]
  - Drug effect increased [Recovered/Resolved]
  - Myocardial infarction [Recovered/Resolved]
